FAERS Safety Report 5366944-1 (Version None)
Quarter: 2007Q2

REPORT INFORMATION
  Report Type: 
  Country: None (occurrence: None)
  Receive Date: 20070622
  Receipt Date: 20070228
  Transmission Date: 20071010
  Serious: No
  Sender: FDA-Public Use
  Company Number: US-ASTRAZENECA-2007UW03879

PATIENT
  Age: 35 Year
  Sex: Male
  Weight: 68 kg

DRUGS (2)
  1. RHINOCORT [Suspect]
     Indication: SINUSITIS
     Dosage: ONE SPRAY EACH NOSTRIL ONCE DAILY
     Route: 045
     Dates: start: 20070201
  2. LORTAB [Concomitant]

REACTIONS (2)
  - NASAL ULCER [None]
  - SCAB [None]
